FAERS Safety Report 14252384 (Version 8)
Quarter: 2018Q2

REPORT INFORMATION
  Report Type: Report from Study
  Country: ES (occurrence: ES)
  Receive Date: 20171205
  Receipt Date: 20180529
  Transmission Date: 20180711
  Serious: Yes (Hospitalization)
  Sender: FDA-Public Use
  Company Number: ES-PFIZER INC-2017511584

PATIENT
  Age: 36 Year
  Sex: Female
  Weight: 54 kg

DRUGS (10)
  1. DOCETAXEL. [Suspect]
     Active Substance: DOCETAXEL
     Indication: HER-2 POSITIVE BREAST CANCER
     Dosage: 1 DF, EVERY 3 WEEKS
     Route: 042
     Dates: start: 20150521, end: 20160311
  2. TRASTUZUMAB. [Suspect]
     Active Substance: TRASTUZUMAB
     Indication: HER-2 POSITIVE BREAST CANCER
     Dosage: 1 DF, EVERY 3 WEEKS (DATE OF LAST DOSE: 11MAR2016, WEEKS AT EXPOSURE: 42 WEEKS DOSE: 600 MG/ 5ML)
     Route: 058
     Dates: start: 20150521, end: 20160311
  3. TAMOXIFENE [Concomitant]
     Active Substance: TAMOXIFEN
     Indication: NEOPLASM MALIGNANT
     Dosage: UNK
     Dates: start: 20150923
  4. TRASTUZUMAB EMTANSINE [Suspect]
     Active Substance: ADO-TRASTUZUMAB EMTANSINE
     Dosage: 1 DF, EVERY 3 WEEKS
     Route: 042
     Dates: start: 201702, end: 201704
  5. DOCETAXEL. [Suspect]
     Active Substance: DOCETAXEL
     Dosage: 55 MG, DATE OF LAST DOSE PRIOR TO PREGNANCY, LAST DOSE DATE: 11MAR2016, WEEKS AT EXPOSURE 14 WEEKS
     Route: 042
     Dates: start: 20150902, end: 20150902
  6. TRASTUZUMAB EMTANSINE [Suspect]
     Active Substance: ADO-TRASTUZUMAB EMTANSINE
     Indication: HER-2 POSITIVE BREAST CANCER
     Dosage: 1 DF, EVERY 3 WEEKS (DOSES: 160 MG AND 100 MG)
     Route: 042
     Dates: start: 20160410, end: 20161103
  7. PERTUZUMAB. [Suspect]
     Active Substance: PERTUZUMAB
     Dosage: 420 MG, EVERY 3 WEEKS (DATE OF LAST DOSE: 11MAR2016 , WEEKS AT EXPOSURE: 42 WEEKS LOADING DOSE)
     Route: 042
     Dates: end: 20160311
  8. DECAPEPTIDE [Concomitant]
     Indication: NEOPLASM MALIGNANT
     Dosage: UNK
     Route: 065
     Dates: start: 20150923
  9. PERTUZUMAB. [Suspect]
     Active Substance: PERTUZUMAB
     Indication: HER-2 POSITIVE BREAST CANCER
     Dosage: 840 MG, SINGLE
     Route: 042
     Dates: start: 20150521
  10. CLEXANE [Concomitant]
     Active Substance: ENOXAPARIN SODIUM
     Dosage: 40 MG, 1X/DAY
     Dates: start: 20170103, end: 20170203

REACTIONS (2)
  - Pre-eclampsia [Unknown]
  - Premature separation of placenta [Unknown]
